FAERS Safety Report 14528738 (Version 2)
Quarter: 2018Q1

REPORT INFORMATION
  Report Type: Report from Study
  Country: None (occurrence: AU)
  Receive Date: 20180214
  Receipt Date: 20180217
  Transmission Date: 20180509
  Serious: Yes (Other)
  Sender: FDA-Public Use
  Company Number: AU-ABBVIE-18K-008-2254809-00

PATIENT
  Age: 52 Year
  Sex: Female
  Weight: 80 kg

DRUGS (4)
  1. HUMIRA [Suspect]
     Active Substance: ADALIMUMAB
     Indication: CROHN^S DISEASE
     Route: 058
     Dates: start: 2013
  2. HUMIRA [Suspect]
     Active Substance: ADALIMUMAB
     Route: 058
  3. MERSYNDOL FORTE [Concomitant]
     Indication: HEADACHE
     Dosage: 1-2 PRN, EARLY EVENINGS
     Route: 048
     Dates: start: 2008
  4. MIRTAZAPINE. [Concomitant]
     Active Substance: MIRTAZAPINE
     Indication: DEPRESSION
     Route: 048
     Dates: start: 2017

REACTIONS (6)
  - Frequent bowel movements [Unknown]
  - Emotional distress [Unknown]
  - Drug level decreased [Unknown]
  - Crohn^s disease [Unknown]
  - Rectal haemorrhage [Not Recovered/Not Resolved]
  - Colon dysplasia [Unknown]

NARRATIVE: CASE EVENT DATE: 201711
